FAERS Safety Report 18992035 (Version 2)
Quarter: 2021Q2

REPORT INFORMATION
  Report Type: Spontaneous
  Country: IN (occurrence: IN)
  Receive Date: 20210310
  Receipt Date: 20210521
  Transmission Date: 20210717
  Serious: Yes (Other)
  Sender: FDA-Public Use
  Company Number: IN-PFIZER INC-2020484799

PATIENT
  Age: 61 Year
  Sex: Female
  Weight: 51.5 kg

DRUGS (17)
  1. DACOPLICE [Suspect]
     Active Substance: DACOMITINIB
     Dosage: 30 MG, 1X/DAY
     Route: 048
     Dates: start: 20201105
  2. DACOPLICE [Suspect]
     Active Substance: DACOMITINIB
     Dosage: 45 MG, DAILY
     Dates: start: 20191024
  3. FAMOTIDINE. [Concomitant]
     Active Substance: FAMOTIDINE
     Dosage: 20 MG, 2X/DAY
  4. LACTO CALAMINE [CALAMINE;HAMAMELIS SPP.;PHENOL;ZINC OXIDE] [Concomitant]
     Dosage: UNK
  5. DACOPLICE [Suspect]
     Active Substance: DACOMITINIB
     Dosage: 30 MG, DAILY
     Dates: start: 20191217
  6. LOMOTIL [LOPERAMIDE HYDROCHLORIDE] [Concomitant]
     Active Substance: LOPERAMIDE HYDROCHLORIDE
     Indication: DIARRHOEA
     Dosage: 1 DF
  7. DOXYCYCLINE. [Concomitant]
     Active Substance: DOXYCYCLINE
     Dosage: UNK, 1X/DAY
  8. SODIUM BICARBONATE. [Concomitant]
     Active Substance: SODIUM BICARBONATE
     Dosage: UNK
  9. MEGASTY [Concomitant]
     Dosage: 160 MG, 2X/DAY
  10. ALLEGRA [Concomitant]
     Active Substance: FEXOFENADINE HYDROCHLORIDE
     Indication: PRURITUS
     Dosage: UNK
  11. DACOPLICE [Suspect]
     Active Substance: DACOMITINIB
     Dosage: 45 MG AND 30 MG ALTERNATE DAY
     Dates: start: 20200910
  12. ATIVAN [Concomitant]
     Active Substance: LORAZEPAM
     Indication: SLEEP DISORDER
     Dosage: 1 MG AT BED TIME
  13. ULTRACET [Concomitant]
     Active Substance: ACETAMINOPHEN\TRAMADOL HYDROCHLORIDE
     Indication: PAIN
     Dosage: 1 DF
  14. DACOPLICE [Suspect]
     Active Substance: DACOMITINIB
     Dosage: 30 MG, DAILY
     Route: 048
     Dates: start: 20201124
  15. DACOPLICE [Suspect]
     Active Substance: DACOMITINIB
     Dosage: 30 MG, DAILY
     Route: 048
     Dates: start: 20210506
  16. HYDROCORTISONE. [Concomitant]
     Active Substance: HYDROCORTISONE
     Dosage: UNK
  17. MUCAINE [ALUMINIUM HYDROXIDE;MAGNESIUM HYDROXIDE;OXETACAINE] [Concomitant]
     Dosage: 15 ML

REACTIONS (16)
  - Skin disorder [Unknown]
  - Dry skin [Unknown]
  - Rash [Unknown]
  - Aspartate aminotransferase increased [Unknown]
  - Body temperature decreased [Recovering/Resolving]
  - Body mass index increased [Unknown]
  - Paronychia [Unknown]
  - Body surface area increased [Unknown]
  - Off label use [Unknown]
  - Palmar-plantar erythrodysaesthesia syndrome [Unknown]
  - Off label use [Unknown]
  - Nail disorder [Unknown]
  - Carcinoembryonic antigen increased [Unknown]
  - Asthenia [Unknown]
  - Pain [Unknown]
  - Weight increased [Unknown]

NARRATIVE: CASE EVENT DATE: 20191217
